FAERS Safety Report 25041821 (Version 3)
Quarter: 2025Q2

REPORT INFORMATION
  Report Type: Spontaneous
  Country: US (occurrence: US)
  Receive Date: 20250305
  Receipt Date: 20250424
  Transmission Date: 20250717
  Serious: Yes (Other)
  Sender: PFIZER
  Company Number: US-PFIZER INC-202500046956

PATIENT
  Age: 56 Year
  Sex: Male

DRUGS (1)
  1. NYVEPRIA [Suspect]
     Active Substance: PEGFILGRASTIM-APGF
     Route: 058

REACTIONS (2)
  - Neoplasm malignant [Unknown]
  - Leg amputation [Unknown]
